FAERS Safety Report 9548796 (Version 1)
Quarter: 2013Q2

REPORT INFORMATION
  Report Type: Spontaneous
  Country: US (occurrence: None)
  Receive Date: 20130626
  Receipt Date: 20130626
  Transmission Date: 20140414
  Serious: Yes (Hospitalization, Other)
  Sender: FDA-Public Use
  Company Number: 379465

PATIENT
  Age: 40 Year
  Sex: Female

DRUGS (2)
  1. BUPIVACAINE HCL 0.75% IN DEX 8.25% INJ, USP (BUPIV. SPINAL) (BUPIVACAINE) [Suspect]
     Indication: ANAESTHESIA
     Route: 037
     Dates: start: 20090914, end: 20090914
  2. EPINEPHRINE [Concomitant]

REACTIONS (4)
  - Loss of consciousness [None]
  - Anaesthetic complication [None]
  - Motor dysfunction [None]
  - Dysarthria [None]
